FAERS Safety Report 19666835 (Version 1)
Quarter: 2021Q3

REPORT INFORMATION
  Report Type: Spontaneous
  Country: US (occurrence: US)
  Receive Date: 20210806
  Receipt Date: 20210806
  Transmission Date: 20211014
  Serious: Yes (Hospitalization)
  Sender: FDA-Public Use
  Company Number: None

PATIENT
  Sex: Female

DRUGS (9)
  1. HUMIRA [Suspect]
     Active Substance: ADALIMUMAB
     Indication: ANKYLOSING SPONDYLITIS
     Dosage: OTHER FREQUENCY:Q 2 WKS;?
     Route: 058
     Dates: start: 20200915
  2. DULOXETINE. [Concomitant]
     Active Substance: DULOXETINE
  3. BACLOFEN. [Concomitant]
     Active Substance: BACLOFEN
  4. TRAZODONE [Concomitant]
     Active Substance: TRAZODONE HYDROCHLORIDE
  5. LOSARTAN POT [Concomitant]
     Active Substance: LOSARTAN POTASSIUM
  6. DESVENLAFAX [Concomitant]
  7. LAMOTRIGINE. [Concomitant]
     Active Substance: LAMOTRIGINE
  8. VENLAFAXINE [Concomitant]
     Active Substance: VENLAFAXINE HYDROCHLORIDE
  9. HYDROXYZ PAM [Concomitant]
     Active Substance: HYDROXYZINE PAMOATE

REACTIONS (1)
  - Depression [None]
